FAERS Safety Report 6655767-9 (Version None)
Quarter: 2010Q1

REPORT INFORMATION
  Report Type: 
  Country: None (occurrence: None)
  Receive Date: 20100329
  Receipt Date: 20100318
  Transmission Date: 20100710
  Serious: Yes (Death)
  Sender: FDA-Public Use
  Company Number: SE-ROCHE-691802

PATIENT
  Age: 62 Year
  Sex: Female

DRUGS (3)
  1. XENICAL [Suspect]
     Indication: OBESITY
     Route: 048
     Dates: start: 20091118, end: 20091121
  2. REDUCTIL [Suspect]
     Indication: OBESITY
     Route: 048
     Dates: start: 20091111, end: 20091117
  3. LYRICA [Concomitant]

REACTIONS (1)
  - SUDDEN DEATH [None]
